FAERS Safety Report 5997616-8 (Version None)
Quarter: 2008Q4

REPORT INFORMATION
  Report Type: 
  Country: None (occurrence: None)
  Receive Date: 20081212
  Receipt Date: 20081204
  Transmission Date: 20090506
  Serious: Yes (Life-Threatening)
  Sender: FDA-Public Use
  Company Number: GB-PFIZER INC-2008150828

PATIENT

DRUGS (3)
  1. ATORVASTATIN CALCIUM [Suspect]
  2. FLOXACILLIN SODIUM [Interacting]
  3. FUSIDIC ACID [Interacting]

REACTIONS (2)
  - DRUG INTERACTION [None]
  - RHABDOMYOLYSIS [None]
